FAERS Safety Report 8214237-7 (Version None)
Quarter: 2012Q1

REPORT INFORMATION
  Report Type: 
  Country: None (occurrence: None)
  Receive Date: 20120315
  Receipt Date: 20120315
  Transmission Date: 20120608
  Serious: Yes (Life-Threatening, Hospitalization)
  Sender: FDA-Public Use
  Company Number: None

PATIENT
  Age: 79 Year
  Sex: Male
  Weight: 114.9 kg

DRUGS (1)
  1. VANCOMYCIN [Suspect]
     Indication: ABSCESS
     Dosage: 1000 MG BID IV
     Route: 042
     Dates: start: 20120105, end: 20120112

REACTIONS (1)
  - THROMBOCYTOPENIA [None]
